FAERS Safety Report 8174094-4 (Version None)
Quarter: 2012Q1

REPORT INFORMATION
  Report Type: 
  Country: None (occurrence: None)
  Receive Date: 20120229
  Receipt Date: 20120228
  Transmission Date: 20120608
  Serious: Yes (Death, Other)
  Sender: FDA-Public Use
  Company Number: BR-BAYER-2012-019682

PATIENT
  Age: 62 Year
  Sex: Male
  Weight: 68 kg

DRUGS (5)
  1. LOSARTAN POTASSIUM [Concomitant]
     Indication: HYPERTENSION
     Dosage: 1 DF, QD
     Route: 048
     Dates: start: 20110701
  2. ATENOLOL [Concomitant]
     Indication: DIURETIC THERAPY
  3. AVELOX [Suspect]
     Indication: PNEUMONIA
     Dosage: 400 MG, QD
     Route: 048
     Dates: start: 20120131, end: 20120202
  4. ATENOLOL [Concomitant]
     Indication: VASODILATION PROCEDURE
     Dosage: 1 DF, QD
     Route: 048
     Dates: start: 19890101
  5. BESEROL [Concomitant]
     Indication: PAIN
     Dosage: 1 DF, QD
     Route: 048
     Dates: start: 20120131

REACTIONS (3)
  - BLOOD PRESSURE DECREASED [None]
  - HALLUCINATION [None]
  - ACUTE MYOCARDIAL INFARCTION [None]
